FAERS Safety Report 4453945-0 (Version None)
Quarter: 2004Q3

REPORT INFORMATION
  Report Type: 
  Country: None (occurrence: None)
  Receive Date: 20040920
  Receipt Date: 20040830
  Transmission Date: 20050211
  Serious: Yes (Death, Hospitalization)
  Sender: FDA-Public Use
  Company Number: PHBS2004DE11487

PATIENT
  Age: 52 Year
  Sex: Male

DRUGS (7)
  1. DICLOFENAC [Suspect]
     Indication: ARTHRALGIA
     Route: 065
  2. DEPOT-INSULIN [Concomitant]
     Indication: DIABETES MELLITUS NON-INSULIN-DEPENDENT
  3. LISINOPRIL [Concomitant]
     Dosage: 10 MG
     Route: 065
  4. SPIRONOLACTONE [Concomitant]
     Dosage: 50 MG
     Route: 065
  5. ASPIRIN [Concomitant]
     Dosage: 100 MG
     Route: 065
  6. SIMVASTATIN [Concomitant]
     Dosage: 20 MG
     Route: 065
  7. BISOPROLOL FUMARATE [Concomitant]
     Dosage: 5 MG
     Route: 065

REACTIONS (10)
  - ASTHENIA [None]
  - BLOOD CREATININE INCREASED [None]
  - BLOOD POTASSIUM INCREASED [None]
  - CARDIAC FAILURE [None]
  - GASTROINTESTINAL EROSION [None]
  - GENERAL PHYSICAL HEALTH DETERIORATION [None]
  - NAUSEA [None]
  - RENAL FAILURE ACUTE [None]
  - SOMNOLENCE [None]
  - VOMITING [None]
